FAERS Safety Report 7785752-5 (Version None)
Quarter: 2011Q3

REPORT INFORMATION
  Report Type: 
  Country: None (occurrence: None)
  Receive Date: 20110929
  Receipt Date: 20110921
  Transmission Date: 20111222
  Serious: Yes (Other)
  Sender: FDA-Public Use
  Company Number: FR-UCBSA-027996

PATIENT
  Age: 40 Year
  Sex: Female

DRUGS (3)
  1. KEPPRA [Suspect]
     Route: 048
  2. VIMPAT [Suspect]
     Route: 048
  3. TOPIRAMATE [Concomitant]
     Route: 048

REACTIONS (2)
  - DELIRIUM [None]
  - SOMNOLENCE [None]
